FAERS Safety Report 5390786-4 (Version None)
Quarter: 2007Q3

REPORT INFORMATION
  Report Type: 
  Country: None (occurrence: None)
  Receive Date: 20070718
  Receipt Date: 20070710
  Transmission Date: 20080115
  Serious: Yes (Hospitalization)
  Sender: FDA-Public Use
  Company Number: CG-MERCK-0707USA01852

PATIENT
  Age: 31 Year
  Sex: Male
  Weight: 52 kg

DRUGS (1)
  1. STROMECTOL [Suspect]
     Route: 048
     Dates: start: 20070419, end: 20070419

REACTIONS (9)
  - ASTHENIA [None]
  - DYSSTASIA [None]
  - HEADACHE [None]
  - HYPERHIDROSIS [None]
  - HYPERTHERMIA [None]
  - HYPOTENSION [None]
  - LOSS OF CONSCIOUSNESS [None]
  - MYALGIA [None]
  - PARALYSIS [None]
